FAERS Safety Report 4772702-9 (Version None)
Quarter: 2005Q3

REPORT INFORMATION
  Report Type: 
  Country: None (occurrence: None)
  Receive Date: 20050915
  Receipt Date: 20050915
  Transmission Date: 20060218
  Serious: No
  Sender: FDA-Public Use
  Company Number: None

PATIENT
  Age: 37 Year
  Sex: Male
  Weight: 83.0083 kg

DRUGS (1)
  1. WELLBUTRIN XL [Suspect]
     Indication: DEPRESSION
     Dosage: 2 PO QD
     Route: 048
     Dates: start: 20050817, end: 20050908

REACTIONS (2)
  - ERYTHEMA MULTIFORME [None]
  - RASH MACULAR [None]
